FAERS Safety Report 23279052 (Version 1)
Quarter: 2023Q4

REPORT INFORMATION
  Report Type: Spontaneous
  Country: CN (occurrence: CN)
  Receive Date: 20231209
  Receipt Date: 20231209
  Transmission Date: 20240109
  Serious: Yes (Other)
  Sender: FDA-Public Use
  Company Number: CN-SUN PHARMACEUTICAL INDUSTRIES LTD-2023R1-422827

PATIENT
  Age: 80 Year
  Sex: Female

DRUGS (8)
  1. OXALIPLATIN [Suspect]
     Active Substance: OXALIPLATIN
     Indication: Adenocarcinoma of colon
     Dosage: 130 MILLIGRAM
     Route: 065
  2. OXALIPLATIN [Suspect]
     Active Substance: OXALIPLATIN
     Dosage: UNK (DOSE HALVED)
     Route: 065
     Dates: start: 202111
  3. BEVACIZUMAB [Suspect]
     Active Substance: BEVACIZUMAB
     Indication: Adenocarcinoma of colon
     Dosage: 300 MILLIGRAM
     Route: 065
  4. BEVACIZUMAB [Suspect]
     Active Substance: BEVACIZUMAB
     Dosage: UNK (DOSE HALVED)
     Route: 065
     Dates: start: 202111
  5. RALTITREXED [Suspect]
     Active Substance: RALTITREXED
     Indication: Adenocarcinoma of colon
     Dosage: 3 MILLIGRAM
     Route: 065
  6. RALTITREXED [Suspect]
     Active Substance: RALTITREXED
     Dosage: UNK (DOSE HALVED)
     Route: 065
     Dates: start: 202111
  7. SINTILIMAB [Suspect]
     Active Substance: SINTILIMAB
     Indication: Adenocarcinoma of colon
     Dosage: 200 MILLIGRAM
     Route: 065
  8. SINTILIMAB [Suspect]
     Active Substance: SINTILIMAB
     Dosage: UNK (DOSE HALVED)
     Route: 065
     Dates: start: 202111

REACTIONS (4)
  - Therapy partial responder [Unknown]
  - Stomatitis [Recovering/Resolving]
  - Nausea [Recovering/Resolving]
  - Fatigue [Recovering/Resolving]
